FAERS Safety Report 7799430-X (Version None)
Quarter: 2011Q4

REPORT INFORMATION
  Report Type: 
  Country: None (occurrence: None)
  Receive Date: 20111006
  Receipt Date: 20110928
  Transmission Date: 20120403
  Serious: Yes (Other)
  Sender: FDA-Public Use
  Company Number: GR-AMGEN-GRCSP2011047102

PATIENT
  Sex: Female

DRUGS (8)
  1. EFFEXOR [Concomitant]
  2. THERAQUEL [Concomitant]
  3. FOLFIRI [Concomitant]
     Indication: COLORECTAL CANCER METASTATIC
     Dosage: 200 MG, UNK
  4. THROMBOPARIN [Concomitant]
  5. LOPRESSOR [Concomitant]
  6. ZOLPIDEM [Concomitant]
  7. REMERON [Concomitant]
  8. VECTIBIX [Suspect]
     Indication: COLORECTAL CANCER METASTATIC
     Dosage: 100 MUG, QWK
     Dates: start: 20110420, end: 20110615

REACTIONS (3)
  - HERPES ZOSTER [None]
  - ILEUS [None]
  - ANAEMIA [None]
